FAERS Safety Report 16254669 (Version 1)
Quarter: 2019Q2

REPORT INFORMATION
  Report Type: Spontaneous
  Country: US (occurrence: US)
  Receive Date: 20190430
  Receipt Date: 20190430
  Transmission Date: 20190711
  Serious: Yes (Other)
  Sender: FDA-Public Use
  Company Number: US-LUPIN PHARMACEUTICALS INC.-2019-02656

PATIENT
  Age: 48 Year
  Sex: Male

DRUGS (1)
  1. TESTOSTERONE. [Suspect]
     Active Substance: TESTOSTERONE
     Indication: SUPPLEMENTATION THERAPY
     Dosage: UNK
     Route: 065

REACTIONS (6)
  - Congestive cardiomyopathy [Recovered/Resolved]
  - Hepatic function abnormal [Recovered/Resolved]
  - Drug abuse [Unknown]
  - Affective disorder [Recovered/Resolved]
  - Drug level increased [None]
  - Portal vein thrombosis [Recovered/Resolved]
